FAERS Safety Report 4402322-7 (Version None)
Quarter: 2004Q3

REPORT INFORMATION
  Report Type: 
  Country: None (occurrence: None)
  Receive Date: 20040716
  Receipt Date: 20040712
  Transmission Date: 20050211
  Serious: Yes (Death, Hospitalization)
  Sender: FDA-Public Use
  Company Number: HQWYE915307JUL04

PATIENT
  Age: 63 Year
  Sex: Female

DRUGS (6)
  1. GEMTUZUMAB OZOGAMICIN (GEMTUZUMAB OZOGAMICIN , INJECTION) [Suspect]
     Indication: DRUG USE FOR UNKNOWN INDICATION
     Dosage: 10 MG 1X PER 1 DAY; UNNOWN
     Route: 065
     Dates: start: 20040430, end: 20040430
  2. IDARUBICIN HCL [Concomitant]
  3. CYTARABINE [Concomitant]
  4. ACYCLOVIR [Concomitant]
  5. VANCOMYCIN [Concomitant]
  6. CEFTAZIDIME [Concomitant]

REACTIONS (2)
  - ARRHYTHMIA [None]
  - CARDIAC ARREST [None]
